FAERS Safety Report 10503951 (Version 2)
Quarter: 2014Q4

REPORT INFORMATION
  Report Type: Spontaneous
  Country: US (occurrence: US)
  Receive Date: 20141008
  Receipt Date: 20141008
  Transmission Date: 20150528
  Serious: Yes (Life-Threatening, Hospitalization)
  Sender: FDA-Public Use
  Company Number: US-BEH-2011028237

PATIENT
  Age: 68 Year
  Sex: Female
  Weight: 76 kg

DRUGS (38)
  1. SINGULAIR [Concomitant]
     Active Substance: MONTELUKAST SODIUM
  2. LOPRESSOR [Concomitant]
     Active Substance: METOPROLOL TARTRATE
  3. ECOTRIN [Concomitant]
     Active Substance: ASPIRIN
  4. COENZYME Q10 [Concomitant]
     Active Substance: UBIDECARENONE
  5. VITAMIN C [Concomitant]
     Active Substance: ASCORBIC ACID
  6. EPIPEN [Concomitant]
     Active Substance: EPINEPHRINE
  7. PLAVIX [Concomitant]
     Active Substance: CLOPIDOGREL BISULFATE
  8. ALL OTHER THERAPEUTIC PRODUCTS [Concomitant]
     Active Substance: UNSPECIFIED INGREDIENT
  9. MULTIVITAMINS [Concomitant]
     Active Substance: VITAMINS
  10. ACETAMINOPHEN CODEINE [Concomitant]
     Active Substance: ACETAMINOPHEN\CODEINE PHOSPHATE
  11. ASPIRIN. [Concomitant]
     Active Substance: ASPIRIN
  12. CALCIUM [Concomitant]
     Active Substance: CALCIUM
  13. VITAMIN D [Concomitant]
     Active Substance: CHOLECALCIFEROL
  14. VITAMIN E [Concomitant]
     Active Substance: .ALPHA.-TOCOPHEROL
  15. ALL OTHER THERAPEUTIC PRODUCTS [Concomitant]
     Active Substance: UNSPECIFIED INGREDIENT
  16. AZELASTINE [Concomitant]
     Active Substance: AZELASTINE
     Route: 045
  17. PRIVIGEN [Suspect]
     Active Substance: HUMAN IMMUNOGLOBULIN G
     Route: 042
  18. ALL OTHER THERAPEUTIC PRODUCTS [Concomitant]
     Active Substance: UNSPECIFIED INGREDIENT
  19. TRAMADOL [Concomitant]
     Active Substance: TRAMADOL
  20. ALL OTHER THERAPEUTIC PRODUCTS [Concomitant]
     Active Substance: UNSPECIFIED INGREDIENT
     Route: 055
  21. PROAIR HFA [Concomitant]
     Active Substance: ALBUTEROL SULFATE
     Route: 055
  22. NASONEX [Concomitant]
     Active Substance: MOMETASONE FUROATE
  23. FISH OIL [Concomitant]
     Active Substance: FISH OIL
  24. ALL OTHER THERAPEUTIC PRODUCTS [Concomitant]
     Active Substance: UNSPECIFIED INGREDIENT
     Route: 048
  25. HEPARIN [Concomitant]
     Active Substance: HEPARIN SODIUM
  26. SODIUM CHLORIDE. [Concomitant]
     Active Substance: SODIUM CHLORIDE
  27. ESTRADIOL. [Concomitant]
     Active Substance: ESTRADIOL
  28. PRIVIGEN [Suspect]
     Active Substance: HUMAN IMMUNOGLOBULIN G
     Indication: HYPOGLOBULINAEMIA
     Dosage: 10 GM VIAL;23ML/HR 16 MIN, 90 ML/HR FOR 15 MIN, 180 ML/HR FOR 15 MIN, 360 ML/HR FOR 38 MIN
     Route: 042
     Dates: start: 20110228, end: 20110228
  29. LOTENSIN [Concomitant]
     Active Substance: BENAZEPRIL HYDROCHLORIDE
  30. AMOXICILLIN. [Concomitant]
     Active Substance: AMOXICILLIN
  31. HEPARIN [Concomitant]
     Active Substance: HEPARIN SODIUM
  32. TRAVATAN [Concomitant]
     Active Substance: TRAVOPROST
     Route: 031
  33. SPIRIVA [Concomitant]
     Active Substance: TIOTROPIUM BROMIDE MONOHYDRATE
  34. NORMAL SALINE [Concomitant]
     Active Substance: SODIUM CHLORIDE
  35. AMLODIPINE [Concomitant]
     Active Substance: AMLODIPINE BESYLATE
  36. LIPITOR [Concomitant]
     Active Substance: ATORVASTATIN CALCIUM
  37. ALL OTHER THERAPEUTIC PRODUCTS [Concomitant]
     Active Substance: UNSPECIFIED INGREDIENT
  38. ESTRACE [Concomitant]
     Active Substance: ESTRADIOL

REACTIONS (3)
  - Headache [Recovered/Resolved]
  - Headache [Recovered/Resolved]
  - Myocardial infarction [Unknown]

NARRATIVE: CASE EVENT DATE: 20110228
